FAERS Safety Report 7266517-X (Version None)
Quarter: 2011Q1

REPORT INFORMATION
  Report Type: 
  Country: None (occurrence: None)
  Receive Date: 20110131
  Receipt Date: 20110125
  Transmission Date: 20110831
  Serious: Yes (Hospitalization, Other)
  Sender: FDA-Public Use
  Company Number: US-PFIZER INC-2010146138

PATIENT
  Sex: Male

DRUGS (12)
  1. ALBUTEROL [Concomitant]
     Indication: LUNG DISORDER
     Dosage: UNK
     Dates: start: 19840101
  2. NORVIR [Concomitant]
     Indication: ACQUIRED IMMUNODEFICIENCY SYNDROME
     Dosage: UNK
     Dates: start: 20060101
  3. MONTELUKAST [Concomitant]
     Indication: LUNG DISORDER
     Dosage: UNK
     Dates: start: 20070101
  4. FLUNISOLIDE [Concomitant]
     Indication: HYPERSENSITIVITY
     Dosage: UNK
     Dates: start: 20070101
  5. BENADRYL [Concomitant]
     Indication: HYPERSENSITIVITY
     Dosage: UNK
     Dates: start: 19920101
  6. TRUVADA [Concomitant]
     Indication: ACQUIRED IMMUNODEFICIENCY SYNDROME
     Dosage: UNK
     Dates: start: 20050101
  7. REYATAZ [Concomitant]
     Indication: ACQUIRED IMMUNODEFICIENCY SYNDROME
     Dosage: UNK
     Dates: start: 20060101
  8. FLUCONAZOLE [Concomitant]
     Indication: FUNGAL INFECTION
     Dosage: UNK
     Dates: start: 20030101
  9. CYCLOBENZAPRINE [Concomitant]
     Indication: INFLAMMATION
     Dosage: UNK
     Dates: start: 20050101
  10. CHANTIX [Suspect]
     Indication: SMOKING CESSATION THERAPY
     Dosage: STARTER MONTH PACK, CONTINUING MONTH PACK
     Dates: start: 20081024, end: 20090211
  11. MOTRIN [Concomitant]
     Indication: PAIN
     Dosage: UNK
     Dates: start: 19900101
  12. ACYCLOVIR [Concomitant]
     Indication: HERPES VIRUS INFECTION
     Dosage: UNK
     Dates: start: 19860101

REACTIONS (13)
  - AGITATION [None]
  - SUICIDE ATTEMPT [None]
  - AGGRESSION [None]
  - ANGER [None]
  - LOSS OF CONSCIOUSNESS [None]
  - PHYSICAL ASSAULT [None]
  - HEADACHE [None]
  - AMNESIA [None]
  - VISION BLURRED [None]
  - INTENTIONAL SELF-INJURY [None]
  - DEPRESSION [None]
  - MOOD SWINGS [None]
  - ANXIETY [None]
